FAERS Safety Report 15683580 (Version 1)
Quarter: 2018Q4

REPORT INFORMATION
  Report Type: Spontaneous
  Country: FR (occurrence: FR)
  Receive Date: 20181204
  Receipt Date: 20181204
  Transmission Date: 20190205
  Serious: Yes (Hospitalization, Other)
  Sender: FDA-Public Use
  Company Number: FR-AUROBINDO-AUR-APL-2018-058352

PATIENT
  Age: 80 Year
  Sex: Female

DRUGS (2)
  1. BISOPROLOL [Suspect]
     Active Substance: BISOPROLOL
     Indication: INTENTIONAL OVERDOSE
     Dosage: NP
     Route: 048
     Dates: start: 20180831, end: 20180831
  2. BROMAZEPAM [Suspect]
     Active Substance: BROMAZEPAM
     Indication: INTENTIONAL OVERDOSE
     Dosage: NP
     Route: 048
     Dates: start: 20180831, end: 20180831

REACTIONS (4)
  - Confusional state [Recovered/Resolved]
  - Somnolence [Recovered/Resolved]
  - Chest pain [Recovered/Resolved]
  - Poisoning deliberate [Recovered/Resolved]

NARRATIVE: CASE EVENT DATE: 20180831
